FAERS Safety Report 19815320 (Version 1)
Quarter: 2021Q3

REPORT INFORMATION
  Report Type: Spontaneous
  Country: DE (occurrence: DE)
  Receive Date: 20210909
  Receipt Date: 20210909
  Transmission Date: 20211014
  Serious: Yes (Hospitalization)
  Sender: FDA-Public Use
  Company Number: DE-MYLANLABS-2021M1059478

PATIENT
  Age: 90 Year
  Sex: Male
  Weight: 76 kg

DRUGS (9)
  1. HYDROCHLORIDE B1 [Concomitant]
     Active Substance: THIAMINE HYDROCHLORIDE
     Dosage: 10 MILLIGRAM (0.5?0.5?0.5?0)
     Route: 048
  2. PANTOPRAZOL                        /01263201/ [Concomitant]
     Active Substance: PANTOPRAZOLE
     Dosage: 20 MG/JEDEN 2. TAG, 1?0?0?0
     Route: 048
  3. ELIQUIS [Concomitant]
     Active Substance: APIXABAN
     Dosage: 5 MILLIGRAM (1?0?1?0), BID
     Route: 048
  4. HYDROCHLOROTHIAZIDE. [Suspect]
     Active Substance: HYDROCHLOROTHIAZIDE
     Indication: PRODUCT USED FOR UNKNOWN INDICATION
     Dosage: 25 MILLIGRAM (1?0?1?0 ), BID
     Route: 048
  5. LOVASTATIN. [Concomitant]
     Active Substance: LOVASTATIN
     Dosage: UNK 20 MG/JEDEN 2. TAG, 0?0?0.5?0
     Route: 048
  6. CARVEDILOL. [Concomitant]
     Active Substance: CARVEDILOL
     Dosage: 25 MILLIGRAM (1?0?0?0), QD
     Route: 048
  7. DOXAZOSIN [Concomitant]
     Active Substance: DOXAZOSIN MESYLATE
     Dosage: 1 MILLIGRAM (0?0?1?0)
     Route: 048
  8. GLIVEC [Suspect]
     Active Substance: IMATINIB MESYLATE
     Indication: PRODUCT USED FOR UNKNOWN INDICATION
     Dosage: 400 MILLIGRAM (0?0?1?0), QD
     Route: 048
  9. TAMSULOSIN [Concomitant]
     Active Substance: TAMSULOSIN
     Dosage: UNK (.4 MG/JEDEN 2. TAG, 1?0?0?0)
     Route: 048

REACTIONS (6)
  - Oedema peripheral [Unknown]
  - Electrolyte imbalance [Unknown]
  - Dyspnoea exertional [Unknown]
  - Atrial fibrillation [Unknown]
  - Weight increased [Unknown]
  - Tachycardia [Unknown]
